FAERS Safety Report 6427887-5 (Version None)
Quarter: 2009Q4

REPORT INFORMATION
  Report Type: 
  Country: None (occurrence: None)
  Receive Date: 20091105
  Receipt Date: 20091030
  Transmission Date: 20100525
  Serious: Yes (Other)
  Sender: FDA-Public Use
  Company Number: US-ASTRAZENECA-2009SE23930

PATIENT
  Age: 25419 Day
  Sex: Female
  Weight: 53.5 kg

DRUGS (2)
  1. SYMBICORT [Suspect]
     Route: 055
  2. BLOOD PRESSURE PILL [Concomitant]
     Route: 065

REACTIONS (1)
  - NEOPLASM MALIGNANT [None]
